FAERS Safety Report 21520015 (Version 3)
Quarter: 2022Q4

REPORT INFORMATION
  Report Type: Spontaneous
  Country: JP (occurrence: JP)
  Receive Date: 20221028
  Receipt Date: 20221215
  Transmission Date: 20230113
  Serious: Yes (Hospitalization)
  Sender: FDA-Public Use
  Company Number: JP-ARBOR PHARMACEUTICALS, LLC-JP-2022ARB002737

PATIENT
  Age: 62 Year
  Sex: Male
  Weight: 65 kg

DRUGS (1)
  1. GLIADEL [Suspect]
     Active Substance: CARMUSTINE
     Indication: Malignant glioma
     Dosage: (7.7 MG,8 TOTAL)
     Route: 018

REACTIONS (1)
  - Hypersensitivity [Recovering/Resolving]

NARRATIVE: CASE EVENT DATE: 20211213
